FAERS Safety Report 4967927-3 (Version None)
Quarter: 2006Q2

REPORT INFORMATION
  Report Type: 
  Country: None (occurrence: None)
  Receive Date: 20060404
  Receipt Date: 20060320
  Transmission Date: 20061013
  Serious: Yes (Hospitalization)
  Sender: FDA-Public Use
  Company Number: GXKR2006TW01622

PATIENT
  Age: 80 Year
  Sex: Female

DRUGS (2)
  1. NIFEDIPINE [Suspect]
     Indication: HYPERTENSION
     Dosage: 5 MG, ORAL
     Route: 048
  2. NITROGLYCERIN (NGX) (NITROGLYCERIN) [Suspect]
     Indication: CHEST PAIN

REACTIONS (12)
  - ABDOMINAL PAIN UPPER [None]
  - ASTHENIA [None]
  - FAECAL INCONTINENCE [None]
  - HYPOREFLEXIA [None]
  - ISCHAEMIC STROKE [None]
  - MUSCLE SPASTICITY [None]
  - PAIN [None]
  - PARAESTHESIA [None]
  - SENSORY LOSS [None]
  - SPINAL CORD INFARCTION [None]
  - THERAPY NON-RESPONDER [None]
  - URINARY INCONTINENCE [None]
